FAERS Safety Report 6130156-4 (Version None)
Quarter: 2009Q1

REPORT INFORMATION
  Report Type: 
  Country: None (occurrence: None)
  Receive Date: 20090324
  Receipt Date: 20090309
  Transmission Date: 20090719
  Serious: Yes (Hospitalization, Other)
  Sender: FDA-Public Use
  Company Number: US-PFIZER INC-2009180969

PATIENT
  Age: 42 Year
  Sex: Female

DRUGS (5)
  1. VERAPAMIL HCL [Suspect]
     Indication: MIGRAINE
     Dosage: UNK
     Route: 048
  2. FIORICET [Concomitant]
  3. TOPIRAMATE [Concomitant]
  4. SUMATRIPTAN [Concomitant]
  5. AMITRIPTYLINE [Concomitant]

REACTIONS (7)
  - ACCIDENTAL OVERDOSE [None]
  - ATRIOVENTRICULAR BLOCK COMPLETE [None]
  - FOOD INTERACTION [None]
  - HYPERGLYCAEMIA [None]
  - HYPOTENSION [None]
  - METABOLIC ACIDOSIS [None]
  - RESPIRATORY FAILURE [None]
